FAERS Safety Report 8059002-9 (Version None)
Quarter: 2012Q1

REPORT INFORMATION
  Report Type: 
  Country: None (occurrence: None)
  Receive Date: 20120119
  Receipt Date: 20120119
  Transmission Date: 20120608
  Serious: Yes (Disabling)
  Sender: FDA-Public Use
  Company Number: None

PATIENT
  Age: 67 Year
  Sex: Male
  Weight: 70.3075 kg

DRUGS (1)
  1. FLUTICASONE PROPIONATE [Suspect]
     Indication: THROAT TIGHTNESS
     Dosage: 2 - 50MCG SPRAYS PER NOSTRIL PER DAY NOSTRIL
     Route: 045
     Dates: start: 20111101, end: 20111126

REACTIONS (1)
  - TINNITUS [None]
